FAERS Safety Report 17405461 (Version 1)
Quarter: 2020Q1

REPORT INFORMATION
  Report Type: Spontaneous
  Country: US (occurrence: US)
  Receive Date: 20200212
  Receipt Date: 20200212
  Transmission Date: 20200409
  Serious: No
  Sender: FDA-Public Use
  Company Number: US-GLAXOSMITHKLINE-US2020019162

PATIENT
  Age: 63 Year
  Sex: Female

DRUGS (1)
  1. BENLYSTA [Suspect]
     Active Substance: BELIMUMAB
     Indication: PRODUCT USED FOR UNKNOWN INDICATION
     Dosage: UNK UNK, WE
     Route: 058
     Dates: start: 201912

REACTIONS (5)
  - Nasal discharge discolouration [Unknown]
  - Sinusitis [Unknown]
  - Sinus disorder [Unknown]
  - Respiratory tract congestion [Unknown]
  - Tension headache [Unknown]

NARRATIVE: CASE EVENT DATE: 20200130
